FAERS Safety Report 6851106-9 (Version None)
Quarter: 2010Q3

REPORT INFORMATION
  Report Type: 
  Country: None (occurrence: None)
  Receive Date: 20100716
  Receipt Date: 20071109
  Transmission Date: 20110219
  Serious: Yes (Other)
  Sender: FDA-Public Use
  Company Number: US-PFIZER INC-2007091643

PATIENT
  Sex: Female
  Weight: 54.4 kg

DRUGS (7)
  1. CHANTIX [Suspect]
     Indication: SMOKING CESSATION THERAPY
     Dates: start: 20071022
  2. VITAMINS [Concomitant]
  3. GARLIC [Concomitant]
  4. FISH OIL [Concomitant]
  5. LINSEED OIL [Concomitant]
  6. VITAMIN C [Concomitant]
  7. CALCIUM W/MAGNESIUM [Concomitant]

REACTIONS (8)
  - CHEST DISCOMFORT [None]
  - FATIGUE [None]
  - HEART RATE INCREASED [None]
  - HYPERHIDROSIS [None]
  - HYPOGLYCAEMIA [None]
  - LETHARGY [None]
  - NAUSEA [None]
  - NOCTURIA [None]
